FAERS Safety Report 4464521-8 (Version None)
Quarter: 2004Q3

REPORT INFORMATION
  Report Type: 
  Country: None (occurrence: None)
  Receive Date: 20040929
  Receipt Date: 20030415
  Transmission Date: 20050211
  Serious: Yes (Life-Threatening, Hospitalization, Disabling)
  Sender: FDA-Public Use
  Company Number: 2003-DE-01481ZA

PATIENT
  Age: 44 Year
  Sex: Female

DRUGS (3)
  1. MOBIC [Suspect]
     Indication: RHEUMATOID ARTHRITIS
     Dosage: STRENGTH: 15 MG/1.5 ML (SEE TEXT)
     Route: 030
     Dates: start: 20030326, end: 20030326
  2. METICORTEN (PREDNISONE) (TA) [Concomitant]
  3. NAPROXEN (NAPROXEN) (TA) [Concomitant]

REACTIONS (4)
  - DYSPNOEA [None]
  - LOSS OF CONSCIOUSNESS [None]
  - URTICARIA [None]
  - VOMITING [None]
